FAERS Safety Report 20043681 (Version 2)
Quarter: 2021Q4

REPORT INFORMATION
  Report Type: Spontaneous
  Country: CN (occurrence: CN)
  Receive Date: 20211108
  Receipt Date: 20211123
  Transmission Date: 20220303
  Serious: Yes (Hospitalization, Other)
  Sender: FDA-Public Use
  Company Number: CN-ASTELLAS-2021US042235

PATIENT
  Age: 45 Year
  Sex: Male

DRUGS (9)
  1. TACROLIMUS [Suspect]
     Active Substance: TACROLIMUS
     Indication: Liver transplant
     Route: 065
     Dates: start: 20190205
  2. TACROLIMUS [Suspect]
     Active Substance: TACROLIMUS
     Dosage: UNK UNK, UNKNOWN FREQ.(DOSING WAS ADJUSTED TO KEEP C0 UNDER 8 NG/ML)
     Route: 065
     Dates: start: 20190217, end: 20190311
  3. TACROLIMUS [Suspect]
     Active Substance: TACROLIMUS
     Dosage: 1 MG, THRICE DAILY (C0 2-3 NG/ML)
     Route: 065
     Dates: start: 20190402
  4. MYCOPHENOLATE MOFETIL [Concomitant]
     Active Substance: MYCOPHENOLATE MOFETIL
     Indication: Liver transplant
     Route: 065
     Dates: start: 20190205, end: 20190311
  5. METHYLPREDNISOLONE [Concomitant]
     Active Substance: METHYLPREDNISOLONE
     Indication: Liver transplant
     Dosage: 500 MG, UNKNOWN FREQ. (HIGH-DOSE)
     Route: 065
     Dates: start: 20190205
  6. METHYLPREDNISOLONE [Concomitant]
     Active Substance: METHYLPREDNISOLONE
     Indication: Liver transplant
     Dosage: 100 MG, UNKNOWN FREQ. (ON POSTOPERATIVE DAY 1 TAPERED )
     Route: 065
     Dates: start: 20190206
  7. METHYLPREDNISOLONE [Concomitant]
     Active Substance: METHYLPREDNISOLONE
     Dosage: 5 MG, UNKNOWN FREQ. (FOR MAINTENANCE)
     Route: 065
     Dates: start: 20190213
  8. CASPOFUNGIN [Concomitant]
     Active Substance: CASPOFUNGIN
     Indication: Aspergillus infection
     Dosage: 70 MG, UNKNOWN FREQ. (DAY 1)
     Route: 065
     Dates: start: 20190206
  9. CASPOFUNGIN [Concomitant]
     Active Substance: CASPOFUNGIN
     Indication: Candida infection
     Dosage: 50 MG, ONCE DAILY (MAINTAINED)
     Route: 065
     Dates: start: 20190207, end: 201902

REACTIONS (8)
  - Immunosuppressant drug level increased [Recovered/Resolved]
  - Cerebral candidiasis [Recovered/Resolved]
  - Cerebral aspergillosis [Recovered/Resolved]
  - Fungal abscess central nervous system [Recovered/Resolved]
  - Aspergillus infection [Recovered/Resolved]
  - Candida infection [Recovered/Resolved]
  - Central nervous system viral infection [Recovered/Resolved]
  - Herpes simplex [Recovered/Resolved]

NARRATIVE: CASE EVENT DATE: 20190201
